FAERS Safety Report 4501659-0 (Version None)
Quarter: 2004Q4

REPORT INFORMATION
  Report Type: 
  Country: None (occurrence: None)
  Receive Date: 20041115
  Receipt Date: 20041115
  Transmission Date: 20050328
  Serious: Yes (Life-Threatening, Hospitalization)
  Sender: FDA-Public Use
  Company Number: None

PATIENT
  Age: 62 Year
  Sex: Male
  Weight: 75.9 kg

DRUGS (14)
  1. MAXZIDE [Suspect]
  2. MULTIVITAMIN WITH MINERALS [Concomitant]
  3. ALBUTEROL [Concomitant]
  4. FERROUS SULFATE TAB [Concomitant]
  5. FOLIC ACID [Concomitant]
  6. PRIMIDONE [Concomitant]
  7. SIMVASTATIN [Concomitant]
  8. ACETAMINOPHEN [Concomitant]
  9. IPRATROPIUM/ALBUTEROL [Concomitant]
  10. PROPRANOLOL [Concomitant]
  11. ASPIRIN [Concomitant]
  12. IBUPROFEN [Concomitant]
  13. FOSINOPRIL SODIUM [Concomitant]
  14. THIAMINE [Concomitant]

REACTIONS (1)
  - HYPONATRAEMIA [None]
